FAERS Safety Report 9801103 (Version 1)
Quarter: 2014Q1

REPORT INFORMATION
  Report Type: Spontaneous
  Country: US (occurrence: US)
  Receive Date: 20140107
  Receipt Date: 20140107
  Transmission Date: 20141002
  Serious: No
  Sender: FDA-Public Use
  Company Number: US-009507513-1401USA001644

PATIENT
  Age: 72 Year
  Sex: Male

DRUGS (6)
  1. LIPTRUZET [Suspect]
     Indication: HYPERCHOLESTEROLAEMIA
     Dosage: 10/20 MG, QD
     Route: 048
     Dates: start: 201311, end: 20131112
  2. NIACIN [Concomitant]
     Dosage: UNK
     Dates: end: 20131112
  3. AMLODIPINE [Concomitant]
  4. METOPROLOL [Concomitant]
  5. OMEGA (OMEPRAZOLE) [Concomitant]
  6. DEXILANT [Concomitant]

REACTIONS (13)
  - Weight decreased [Not Recovered/Not Resolved]
  - Dry mouth [Not Recovered/Not Resolved]
  - Dysphonia [Not Recovered/Not Resolved]
  - Abdominal mass [Not Recovered/Not Resolved]
  - Laboratory test abnormal [Not Recovered/Not Resolved]
  - Cholestasis [Not Recovered/Not Resolved]
  - Dysgeusia [Not Recovered/Not Resolved]
  - Constipation [Not Recovered/Not Resolved]
  - Abdominal distension [Not Recovered/Not Resolved]
  - Decreased appetite [Not Recovered/Not Resolved]
  - Vomiting [Not Recovered/Not Resolved]
  - Nausea [Not Recovered/Not Resolved]
  - Abdominal discomfort [Not Recovered/Not Resolved]
